FAERS Safety Report 5324495-4 (Version None)
Quarter: 2007Q2

REPORT INFORMATION
  Report Type: 
  Country: None (occurrence: None)
  Receive Date: 20070514
  Receipt Date: 20070503
  Transmission Date: 20071010
  Serious: Yes (Life-Threatening, Other)
  Sender: FDA-Public Use
  Company Number: US-PFIZER INC-2006133522

PATIENT
  Sex: Female

DRUGS (3)
  1. CELEBREX [Suspect]
     Indication: RHEUMATOID ARTHRITIS
  2. BEXTRA [Suspect]
     Indication: RHEUMATOID ARTHRITIS
     Dates: start: 20040731
  3. VIOXX [Suspect]

REACTIONS (4)
  - CARDIOVASCULAR DISORDER [None]
  - INSOMNIA [None]
  - ISCHAEMIC STROKE [None]
  - MYOCARDIAL INFARCTION [None]
